FAERS Safety Report 20246951 (Version 5)
Quarter: 2022Q2

REPORT INFORMATION
  Report Type: Spontaneous
  Country: US (occurrence: None)
  Receive Date: 20211229
  Receipt Date: 20220531
  Transmission Date: 20220721
  Serious: No
  Sender: FDA-Public Use
  Company Number: 2021A899652

PATIENT
  Age: 3190 Week
  Sex: Male
  Weight: 79.4 kg

DRUGS (2)
  1. BUDESONIDE\FORMOTEROL\GLYCOPYRRONIUM [Suspect]
     Active Substance: BUDESONIDE\FORMOTEROL\GLYCOPYRRONIUM
     Indication: COVID-19
     Dosage: 160MCG/9MCG/4.8MCG, 120 INHALATIONS, 2 INHALATIONS TWO TIMES A DAY
     Route: 055
     Dates: start: 20211107
  2. BUDESONIDE\FORMOTEROL\GLYCOPYRRONIUM [Suspect]
     Active Substance: BUDESONIDE\FORMOTEROL\GLYCOPYRRONIUM
     Indication: Chronic obstructive pulmonary disease
     Dosage: 160MCG/9MCG/4.8MCG, 120 INHALATIONS, 2 INHALATIONS TWO TIMES A DAY
     Route: 055
     Dates: start: 20211107

REACTIONS (9)
  - Fatigue [Unknown]
  - Dyspnoea [Unknown]
  - Chronic obstructive pulmonary disease [Unknown]
  - Product dose omission issue [Unknown]
  - Wrong technique in device usage process [Unknown]
  - Device use issue [Unknown]
  - Off label use [Unknown]
  - Intentional product misuse [Unknown]
  - Device occlusion [Unknown]

NARRATIVE: CASE EVENT DATE: 20191107
